FAERS Safety Report 8386370-0 (Version None)
Quarter: 2012Q2

REPORT INFORMATION
  Report Type: 
  Country: None (occurrence: None)
  Receive Date: 20120523
  Receipt Date: 20120509
  Transmission Date: 20120825
  Serious: Yes (Other)
  Sender: FDA-Public Use
  Company Number: AUR-APL-2009-01707

PATIENT
  Age: 25 Year
  Sex: Male

DRUGS (2)
  1. AMISULPRIDE (AMISULPRIDE) [Suspect]
     Indication: MENTAL DISORDER
     Dosage: (200 MG)
  2. METFFORMIN HYDROCHLORIDE [Suspect]
     Indication: HYPERINSULINAEMIA
     Dosage: 1500 MG (500 MG,3 IN 1 D)
     Dates: start: 20080601

REACTIONS (2)
  - RHABDOMYOLYSIS [None]
  - DRUG INTERACTION [None]
